FAERS Safety Report 12977745 (Version 2)
Quarter: 2016Q4

REPORT INFORMATION
  Report Type: Spontaneous
  Country: US (occurrence: US)
  Receive Date: 20161128
  Receipt Date: 20161208
  Transmission Date: 20170207
  Serious: No
  Sender: FDA-Public Use
  Company Number: US-BAYER-2016-224062

PATIENT
  Age: 90 Year
  Sex: Female
  Weight: 94.79 kg

DRUGS (1)
  1. MIRALAX [Suspect]
     Active Substance: POLYETHYLENE GLYCOL 3350
     Indication: GASTROINTESTINAL DISORDER
     Dosage: 1 DF, PRN
     Route: 050
     Dates: start: 2015, end: 20161122

REACTIONS (5)
  - Musculoskeletal stiffness [Unknown]
  - Therapeutic response unexpected [Unknown]
  - Product use issue [Unknown]
  - Diarrhoea [Unknown]
  - Infrequent bowel movements [Unknown]
